FAERS Safety Report 4273144-5 (Version None)
Quarter: 2004Q1

REPORT INFORMATION
  Report Type: 
  Country: None (occurrence: None)
  Receive Date: 20040116
  Receipt Date: 20040109
  Transmission Date: 20041129
  Serious: Yes (Life-Threatening)
  Sender: FDA-Public Use
  Company Number: FR-GLAXOSMITHKLINE-B0319363A

PATIENT
  Age: 82 Year
  Sex: Female
  Weight: 68 kg

DRUGS (4)
  1. AUGMENTIN [Suspect]
     Indication: LUNG INFECTION
     Dosage: 2G PER DAY
     Route: 048
     Dates: start: 20031114, end: 20031117
  2. FLUDEX [Suspect]
     Route: 048
     Dates: end: 20031116
  3. LEXOMIL [Suspect]
     Dosage: 3MG PER DAY
     Route: 048
     Dates: end: 20031118
  4. LIPANOR [Concomitant]
     Dosage: 1UNIT PER DAY
     Route: 048

REACTIONS (4)
  - CONFUSIONAL STATE [None]
  - OVERDOSE [None]
  - RENAL FAILURE ACUTE [None]
  - RESPIRATORY FAILURE [None]
